FAERS Safety Report 6158256-3 (Version None)
Quarter: 2009Q2

REPORT INFORMATION
  Report Type: 
  Country: None (occurrence: None)
  Receive Date: 20090417
  Receipt Date: 20090407
  Transmission Date: 20091009
  Serious: Yes (Life-Threatening, Hospitalization)
  Sender: FDA-Public Use
  Company Number: NL-TYCO HEALTHCARE/MALLINCKRODT-T200900822

PATIENT

DRUGS (1)
  1. MORPHINE [Suspect]
     Indication: SURGERY
     Route: 042

REACTIONS (2)
  - MUSCLE RIGIDITY [None]
  - RESPIRATORY FAILURE [None]
